FAERS Safety Report 15005766 (Version 1)
Quarter: 2018Q2

REPORT INFORMATION
  Report Type: Spontaneous
  Country: AM (occurrence: AM)
  Receive Date: 20180613
  Receipt Date: 20180613
  Transmission Date: 20180711
  Serious: Yes (Other)
  Sender: FDA-Public Use
  Company Number: AM-PFIZER INC-2018237699

PATIENT
  Age: 46 Year
  Sex: Male

DRUGS (15)
  1. DELAMANID [Suspect]
     Active Substance: DELAMANID
     Indication: TUBERCULOSIS
     Dosage: UNK, 1X/DAY(200, UNIT NOT REPORTED)
     Dates: start: 20170130, end: 20180429
  2. LEVOFLOXACIN. [Suspect]
     Active Substance: LEVOFLOXACIN
     Dosage: UNK
     Dates: start: 20180320
  3. LINEZOLID. [Suspect]
     Active Substance: LINEZOLID
     Dosage: UNK
     Dates: start: 20180320
  4. AMOXICILLIN/CLAVULANIC ACID [Suspect]
     Active Substance: AMOXICILLIN\CLAVULANIC ACID
     Indication: TUBERCULOSIS
     Dosage: UNK, 1X/DAY(2000, UNIT NOT PROVIDED)
     Dates: start: 20170130, end: 20170308
  5. CYCLOSERINE. [Suspect]
     Active Substance: CYCLOSERINE
     Indication: TUBERCULOSIS
     Dosage: UNK, 1X/DAY(750, UNIT NOT PROVIDED)
     Dates: start: 20170130, end: 20180317
  6. PYRIDOXINE [Concomitant]
     Active Substance: PYRIDOXINE
     Dosage: UNK
  7. DACLATASVIR. [Concomitant]
     Active Substance: DACLATASVIR
     Indication: HEPATITIS C RNA
     Dosage: UNK
  8. CLOFAZIMINE [Suspect]
     Active Substance: CLOFAZIMINE
     Indication: TUBERCULOSIS
     Dosage: UNK, 1X/DAY(200, UNIT NOT PROVIDED)
     Dates: start: 20170130, end: 20180317
  9. CYCLOSERINE. [Suspect]
     Active Substance: CYCLOSERINE
     Dosage: UNK
     Dates: start: 20180320
  10. IMIPENEM [Suspect]
     Active Substance: IMIPENEM
     Indication: TUBERCULOSIS
     Dosage: UNK, 1X/DAY(2000, UNIT NOT PROVIDED)
     Dates: start: 20170130, end: 20170308
  11. CLOFAZIMINE [Suspect]
     Active Substance: CLOFAZIMINE
     Dosage: UNK
     Dates: start: 20180320
  12. CAPREOMYCIN [Suspect]
     Active Substance: CAPREOMYCIN
     Indication: TUBERCULOSIS
     Dosage: UNK, 1X/DAY(1000, UNIT NOT PROVIDED)
     Dates: start: 20170307, end: 20170720
  13. LINEZOLID. [Suspect]
     Active Substance: LINEZOLID
     Indication: TUBERCULOSIS
     Dosage: UNK, 1X/DAY(600, UNIT NOT PROVIDED)
     Dates: start: 20170130, end: 20180317
  14. LEVOFLOXACIN. [Suspect]
     Active Substance: LEVOFLOXACIN
     Indication: TUBERCULOSIS
     Dosage: UNK, 1X/DAY(1000, UNIT NOT PROVIDED)
     Dates: start: 20170130, end: 20180317
  15. SOFOSBUVIR [Concomitant]
     Active Substance: SOFOSBUVIR
     Indication: HEPATITIS C RNA
     Dosage: UNK

REACTIONS (3)
  - Tinnitus [Unknown]
  - Hypertension [Recovered/Resolved]
  - Diarrhoea [Unknown]

NARRATIVE: CASE EVENT DATE: 2017
